FAERS Safety Report 6826851-1 (Version None)
Quarter: 2010Q3

REPORT INFORMATION
  Report Type: 
  Country: None (occurrence: None)
  Receive Date: 20100709
  Receipt Date: 20100628
  Transmission Date: 20110219
  Serious: Yes (Death, Hospitalization, Other)
  Sender: FDA-Public Use
  Company Number: CH-ROCHE-711947

PATIENT
  Age: 34 Year
  Sex: Male

DRUGS (5)
  1. MYCOPHENOLATE MOFETIL [Suspect]
     Indication: GRAFT VERSUS HOST DISEASE
     Route: 065
  2. TACROLIMUS [Suspect]
     Indication: GRAFT VERSUS HOST DISEASE
     Route: 065
  3. CIPROFLOXACIN HCL [Suspect]
     Indication: PRODUCT USED FOR UNKNOWN INDICATION
     Route: 065
  4. METRONIDAZOLE [Suspect]
     Indication: PRODUCT USED FOR UNKNOWN INDICATION
     Route: 065
  5. VORICONAZOLE [Suspect]
     Indication: PRODUCT USED FOR UNKNOWN INDICATION
     Route: 065

REACTIONS (3)
  - FUNGAL ABSCESS CENTRAL NERVOUS SYSTEM [None]
  - HEMIANOPIA HOMONYMOUS [None]
  - HEMIPLEGIA [None]
